FAERS Safety Report 6145704-8 (Version None)
Quarter: 2009Q2

REPORT INFORMATION
  Report Type: 
  Country: None (occurrence: None)
  Receive Date: 20090406
  Receipt Date: 20090406
  Transmission Date: 20091009
  Serious: No
  Sender: FDA-Public Use
  Company Number: None

PATIENT
  Age: 43 Year
  Sex: Female
  Weight: 102.5129 kg

DRUGS (2)
  1. YASMIN [Suspect]
     Indication: CONTRACEPTION
     Dosage: 28- 3-0.03 QD PO
     Route: 048
     Dates: start: 20090301
  2. YASMIN [Suspect]
     Indication: DYSMENORRHOEA
     Dosage: 28- 3-0.03 QD PO
     Route: 048
     Dates: start: 20090301

REACTIONS (1)
  - RASH [None]
